FAERS Safety Report 8327568-7 (Version None)
Quarter: 2012Q2

REPORT INFORMATION
  Report Type: 
  Country: None (occurrence: None)
  Receive Date: 20120430
  Receipt Date: 20120416
  Transmission Date: 20120825
  Serious: Yes (Disabling, Other)
  Sender: FDA-Public Use
  Company Number: 2012AP001077

PATIENT
  Sex: Female

DRUGS (2)
  1. ALENDRONATE SODIUM [Suspect]
     Indication: OSTEOPOROSIS
  2. ALENDRONATE SODIUM [Suspect]
     Indication: OSTEOPOROSIS

REACTIONS (12)
  - LOW TURNOVER OSTEOPATHY [None]
  - MENTAL DISORDER [None]
  - ANHEDONIA [None]
  - PSYCHOGENIC PAIN DISORDER [None]
  - MULTIPLE INJURIES [None]
  - FEMUR FRACTURE [None]
  - PAIN [None]
  - EMOTIONAL DISTRESS [None]
  - FEAR OF DISEASE [None]
  - STRESS FRACTURE [None]
  - OSTEOGENESIS IMPERFECTA [None]
  - ANXIETY [None]
